FAERS Safety Report 6316259-X (Version None)
Quarter: 2009Q3

REPORT INFORMATION
  Report Type: 
  Country: None (occurrence: None)
  Receive Date: 20090819
  Receipt Date: 20090819
  Transmission Date: 20100115
  Serious: Yes (Hospitalization)
  Sender: FDA-Public Use
  Company Number: None

PATIENT
  Sex: Male
  Weight: 72.5755 kg

DRUGS (2)
  1. RANIBIZUMAB (GENETECH) [Suspect]
     Indication: DIABETIC RETINOPATHY
     Dosage: 0.5MG INTRAVITREAL INJ
  2. RANIBIZUMAB (GENETECH) [Suspect]
     Indication: IRIS NEOVASCULARISATION
     Dosage: 0.5MG INTRAVITREAL INJ

REACTIONS (1)
  - CARDIAC FAILURE CONGESTIVE [None]
